FAERS Safety Report 8559870 (Version 4)
Quarter: 2012Q4

REPORT INFORMATION
  Report Type: Spontaneous
  Country: US (occurrence: None)
  Receive Date: 20120508
  Receipt Date: 20120928
  Transmission Date: 20130627
  Serious: Yes (Hospitalization)
  Sender: FDA-Public Use
  Company Number: ACO_30233_2012

PATIENT
  Age: 48 Year
  Sex: Female

DRUGS (3)
  1. AMPYRA [Suspect]
     Indication: PRODUCT USED FOR UNKNOWN INDICATION
     Dosage: 10 MG, BID
     Dates: start: 20110404, end: 201204
  2. AVONEX [Concomitant]
  3. ZOLOFT [Concomitant]

REACTIONS (4)
  - Convulsion [None]
  - Hyperventilation [None]
  - Nausea [None]
  - Feeling abnormal [None]
